FAERS Safety Report 8161543-0 (Version None)
Quarter: 2012Q1

REPORT INFORMATION
  Report Type: 
  Country: None (occurrence: None)
  Receive Date: 20120222
  Receipt Date: 20120222
  Transmission Date: 20120608
  Serious: Yes (Hospitalization)
  Sender: FDA-Public Use
  Company Number: None

PATIENT
  Sex: Female
  Weight: 10 kg

DRUGS (1)
  1. SODIUM CHLORIDE 3% [Suspect]
     Indication: HYPONATRAEMIA
     Dosage: 500 ML 30 ML/HR IV - PERIPHERAL
     Route: 042
     Dates: start: 20120120

REACTIONS (4)
  - INJECTION SITE ERYTHEMA [None]
  - INJECTION SITE EXFOLIATION [None]
  - INJECTION SITE VESICLES [None]
  - INJECTION SITE EXTRAVASATION [None]
